FAERS Safety Report 8343455-2 (Version None)
Quarter: 2012Q2

REPORT INFORMATION
  Report Type: 
  Country: None (occurrence: None)
  Receive Date: 20120508
  Receipt Date: 20120502
  Transmission Date: 20120825
  Serious: Yes (Hospitalization)
  Sender: FDA-Public Use
  Company Number: JP-B.I. PHARMACEUTICALS,INC./RIDGEFIELD-2012-BP-10243NB

PATIENT

DRUGS (1)
  1. PRADAXA [Suspect]
     Route: 065

REACTIONS (1)
  - PORTAL VEIN THROMBOSIS [None]
